FAERS Safety Report 9511471 (Version 1)
Quarter: 2013Q3

REPORT INFORMATION
  Report Type: Spontaneous
  Country: US (occurrence: None)
  Receive Date: 20130906
  Receipt Date: 20130906
  Transmission Date: 20140515
  Serious: Yes (Other)
  Sender: FDA-Public Use
  Company Number: 7233404

PATIENT
  Age: 27 Year
  Sex: Female

DRUGS (1)
  1. REBIF (INTERFERON BETA-1A) [Suspect]
     Indication: PRODUCT USED FOR UNKNOWN INDICATION
     Route: 058
     Dates: start: 20120322

REACTIONS (7)
  - Post procedural haemorrhage [None]
  - Procedural pain [None]
  - Device difficult to use [None]
  - Oropharyngeal pain [None]
  - Post procedural complication [None]
  - Myalgia [None]
  - Injection site pain [None]
